FAERS Safety Report 22354848 (Version 1)
Quarter: 2023Q2

REPORT INFORMATION
  Report Type: Spontaneous
  Country: CO (occurrence: CO)
  Receive Date: 20230523
  Receipt Date: 20230523
  Transmission Date: 20230721
  Serious: Yes (Death, Other)
  Sender: FDA-Public Use
  Company Number: CO-ASTELLAS-2023US015540

PATIENT
  Age: 62 Year
  Sex: Female

DRUGS (1)
  1. CRESEMBA [Suspect]
     Active Substance: ISAVUCONAZONIUM SULFATE
     Indication: Aspergillus infection
     Route: 048
     Dates: start: 20230427, end: 20230503

REACTIONS (3)
  - Respiratory disorder [Unknown]
  - Death [Fatal]
  - Asthma [Unknown]

NARRATIVE: CASE EVENT DATE: 20230503
